FAERS Safety Report 7738009-2 (Version None)
Quarter: 2011Q3

REPORT INFORMATION
  Report Type: 
  Country: None (occurrence: None)
  Receive Date: 20110908
  Receipt Date: 20110901
  Transmission Date: 20111222
  Serious: Yes (Hospitalization, Other)
  Sender: FDA-Public Use
  Company Number: SE-SANOFI-AVENTIS-2011SA052237

PATIENT
  Age: 60 Year
  Sex: Male

DRUGS (18)
  1. OMEPRAZOLE [Concomitant]
     Dates: start: 20110716
  2. ALL OTHER THERAPEUTIC PRODUCTS [Concomitant]
     Dosage: DOSE:1500 UNIT(S)
     Dates: start: 20110711
  3. FUROSEMIDE [Concomitant]
     Dates: start: 20110711
  4. INSULATARD NPH HUMAN [Concomitant]
     Dates: start: 20110718
  5. BETA BLOCKING AGENTS [Concomitant]
  6. PLATELETS [Concomitant]
  7. HMG COA REDUCTASE INHIBITORS [Concomitant]
  8. SPIRONOLACTONE [Concomitant]
     Dates: start: 20110713
  9. SODIUM PICOSULFATE [Concomitant]
     Dates: start: 20110712, end: 20110725
  10. LACTULOSE [Concomitant]
     Dates: start: 20110720, end: 20110725
  11. ASPIRIN [Concomitant]
  12. CLOPIDOGREL BISULFATE [Suspect]
     Route: 065
  13. IMPORTAL [Concomitant]
     Dates: start: 20110726
  14. NOVORAPID [Concomitant]
     Dates: start: 20110711, end: 20110719
  15. ANGIOTENSIN II ANTAGONISTS [Concomitant]
  16. OXYCONTIN [Concomitant]
     Dates: start: 20110711
  17. ASPIRIN [Concomitant]
     Dates: end: 20110722
  18. METFORMIN HCL [Concomitant]
     Dates: end: 20110711

REACTIONS (3)
  - LIVER DISORDER [None]
  - CONSTIPATION [None]
  - PORTAL VEIN THROMBOSIS [None]
